FAERS Safety Report 24177978 (Version 1)
Quarter: 2024Q3

REPORT INFORMATION
  Report Type: Spontaneous
  Country: US (occurrence: US)
  Receive Date: 20240806
  Receipt Date: 20240806
  Transmission Date: 20241016
  Serious: No
  Sender: TEVA
  Company Number: US-TEVA-VS-3226169

PATIENT
  Age: 49 Year
  Sex: Female
  Weight: 54.43 kg

DRUGS (1)
  1. CLONAZEPAM [Suspect]
     Active Substance: CLONAZEPAM
     Indication: Anxiety
     Dosage: 0.25MG EVERY OTHER DAY
     Route: 065
     Dates: start: 2019

REACTIONS (5)
  - Abdominal discomfort [Unknown]
  - Accidental underdose [Unknown]
  - Mood altered [Unknown]
  - Wrong technique in product usage process [Unknown]
  - Agitation [Unknown]
